FAERS Safety Report 20877272 (Version 5)
Quarter: 2022Q3

REPORT INFORMATION
  Report Type: Spontaneous
  Country: CR (occurrence: CR)
  Receive Date: 20220526
  Receipt Date: 20220811
  Transmission Date: 20221027
  Serious: No
  Sender: FDA-Public Use
  Company Number: CR-PFIZER INC-202200700230

PATIENT
  Age: 41 Year
  Sex: Male

DRUGS (2)
  1. GENOTROPIN [Suspect]
     Active Substance: SOMATROPIN
     Dosage: 12 MG, DAILY (EVERY DAY)
     Dates: start: 20220210
  2. GENOTROPIN [Suspect]
     Active Substance: SOMATROPIN
     Dosage: 72 MG DAILY

REACTIONS (4)
  - Wrong technique in device usage process [Unknown]
  - Incorrect dose administered by device [Unknown]
  - Device calibration failure [Unknown]
  - Device leakage [Unknown]
